FAERS Safety Report 4294355-9 (Version None)
Quarter: 2004Q1

REPORT INFORMATION
  Report Type: 
  Country: None (occurrence: None)
  Receive Date: 20040211
  Receipt Date: 20040128
  Transmission Date: 20041129
  Serious: Yes (Death, Hospitalization, Other)
  Sender: FDA-Public Use
  Company Number: USA040155753

PATIENT
  Age: 59 Year
  Sex: Female
  Weight: 63 kg

DRUGS (12)
  1. XIGRIS [Suspect]
     Indication: SEPSIS
     Dates: start: 20040101, end: 20040104
  2. PEPCID [Interacting]
  3. FLORINEF [Concomitant]
  4. SOLU-CORTEF [Concomitant]
  5. MORPHINE [Concomitant]
  6. TYLENOL [Concomitant]
  7. PHENERGAN [Concomitant]
  8. ATIVAN [Concomitant]
  9. TICARCILLIN DISODIUM/CLAVULANATE POTASSIUM [Concomitant]
  10. CLINDAMYCIN [Concomitant]
  11. CANCIDAS [Concomitant]
  12. LEVOPHED [Concomitant]

REACTIONS (3)
  - GASTROINTESTINAL HAEMORRHAGE [None]
  - MEDICATION ERROR [None]
  - PNEUMONIA [None]
